FAERS Safety Report 4952231-X (Version None)
Quarter: 2006Q1

REPORT INFORMATION
  Report Type: 
  Country: None (occurrence: None)
  Receive Date: 20060320
  Receipt Date: 20060308
  Transmission Date: 20060701
  Serious: Yes (Hospitalization, Other)
  Sender: FDA-Public Use
  Company Number: HQWYE221509MAR06

PATIENT
  Age: 55 Year
  Sex: Male

DRUGS (8)
  1. RAPAMUNE [Suspect]
     Indication: PROPHYLAXIS AGAINST TRANSPLANT REJECTION
     Dosage: 4 MG 1X PER 1 DAY ORAL
     Route: 048
     Dates: start: 20060201, end: 20060228
  2. MYCOPHENOLATE MOFETIL [Suspect]
     Indication: PROPHYLAXIS AGAINST TRANSPLANT REJECTION
     Dosage: 200 MG 1X PER 1 DAY ORAL; SEE IMAGE
     Route: 048
     Dates: start: 20060227, end: 20060306
  3. MYCOPHENOLATE MOFETIL [Suspect]
     Indication: PROPHYLAXIS AGAINST TRANSPLANT REJECTION
     Dosage: 200 MG 1X PER 1 DAY ORAL; SEE IMAGE
     Route: 048
     Dates: start: 20060227
  4. MYCOPHENOLATE MOFETIL [Suspect]
     Indication: PROPHYLAXIS AGAINST TRANSPLANT REJECTION
     Dosage: 200 MG 1X PER 1 DAY ORAL; SEE IMAGE
     Route: 048
     Dates: start: 20060307
  5. CARVEDILOL [Concomitant]
  6. MIXTARD HUMAN 70/30 [Concomitant]
  7. ARANESP [Concomitant]
  8. FUROSEMIDE [Concomitant]

REACTIONS (1)
  - URETHRAL FISTULA [None]
